FAERS Safety Report 5808125-0 (Version None)
Quarter: 2008Q3

REPORT INFORMATION
  Report Type: 
  Country: None (occurrence: None)
  Receive Date: 20080708
  Receipt Date: 20080611
  Transmission Date: 20090109
  Serious: Yes (Death)
  Sender: FDA-Public Use
  Company Number: 2008S1010060

PATIENT
  Age: 35 Year
  Sex: Female

DRUGS (1)
  1. CITALOPRAM HYDROBROMIDE [Suspect]
     Indication: OVERDOSE

REACTIONS (12)
  - CARDIAC ARREST [None]
  - CONVULSION [None]
  - DRUG TOXICITY [None]
  - ENCEPHALOPATHY [None]
  - HEPATIC ENZYME INCREASED [None]
  - HYPOKALAEMIA [None]
  - INTENTIONAL OVERDOSE [None]
  - LOSS OF CONSCIOUSNESS [None]
  - PNEUMONIA ASPIRATION [None]
  - RENAL IMPAIRMENT [None]
  - RESPIRATORY ARREST [None]
  - STAPHYLOCOCCAL SEPSIS [None]
